FAERS Safety Report 14746822 (Version 5)
Quarter: 2022Q1

REPORT INFORMATION
  Report Type: Report from Study
  Country: JP (occurrence: JP)
  Receive Date: 20180411
  Receipt Date: 20220225
  Transmission Date: 20220423
  Serious: Yes (Hospitalization, Other)
  Sender: FDA-Public Use
  Company Number: JP-OTSUKA-2018_008582

PATIENT
  Age: 63 Year
  Sex: Male
  Weight: 56 kg

DRUGS (32)
  1. PONATINIB [Suspect]
     Active Substance: PONATINIB
     Indication: Philadelphia positive acute lymphocytic leukaemia
     Dosage: 45 MILLIGRAM, QD
     Route: 048
     Dates: start: 20170428, end: 20170511
  2. PONATINIB [Suspect]
     Active Substance: PONATINIB
     Dosage: 30 MILLIGRAM, QD
     Route: 048
     Dates: start: 20170524, end: 20170619
  3. PONATINIB [Suspect]
     Active Substance: PONATINIB
     Dosage: 15 MILLIGRAM, QD
     Route: 048
     Dates: start: 20170620, end: 20170730
  4. PONATINIB [Suspect]
     Active Substance: PONATINIB
     Dosage: UNK
     Route: 048
     Dates: start: 20170410
  5. PONATINIB [Suspect]
     Active Substance: PONATINIB
     Dosage: 15 MILLIGRAM, QOD
     Route: 048
  6. DEXAMETHASONE SODIUM PHOSPHATE [Suspect]
     Active Substance: DEXAMETHASONE SODIUM PHOSPHATE
     Indication: Philadelphia positive acute lymphocytic leukaemia
     Dosage: UNK
     Route: 065
     Dates: start: 20140609, end: 20140630
  7. DEXAMETHASONE SODIUM PHOSPHATE [Suspect]
     Active Substance: DEXAMETHASONE SODIUM PHOSPHATE
     Dosage: UNK
     Route: 065
     Dates: start: 20170428, end: 20170511
  8. DEXAMETHASONE SODIUM PHOSPHATE [Suspect]
     Active Substance: DEXAMETHASONE SODIUM PHOSPHATE
     Dosage: UNK
     Route: 065
     Dates: start: 20170524, end: 20170526
  9. DEXAMETHASONE SODIUM PHOSPHATE [Suspect]
     Active Substance: DEXAMETHASONE SODIUM PHOSPHATE
     Dosage: UNK
     Route: 065
     Dates: start: 20170620, end: 20170703
  10. CYTARABINE [Suspect]
     Active Substance: CYTARABINE
     Indication: Chemotherapy
     Dosage: UNK
     Route: 065
  11. CYCLOPHOSPHAMIDE [Suspect]
     Active Substance: CYCLOPHOSPHAMIDE
     Indication: Philadelphia positive acute lymphocytic leukaemia
     Dosage: UNK
     Route: 065
     Dates: start: 20140609, end: 20140630
  12. CYCLOPHOSPHAMIDE [Suspect]
     Active Substance: CYCLOPHOSPHAMIDE
     Dosage: UNK
     Route: 065
     Dates: start: 20170428, end: 20170511
  13. CYCLOPHOSPHAMIDE [Suspect]
     Active Substance: CYCLOPHOSPHAMIDE
     Dosage: UNK
     Route: 065
     Dates: start: 20170524, end: 20170526
  14. CYCLOPHOSPHAMIDE [Suspect]
     Active Substance: CYCLOPHOSPHAMIDE
     Dosage: UNK
     Route: 065
     Dates: start: 20170620, end: 20170703
  15. DOXORUBICIN HYDROCHLORIDE [Suspect]
     Active Substance: DOXORUBICIN HYDROCHLORIDE
     Indication: Philadelphia positive acute lymphocytic leukaemia
     Dosage: UNK
     Route: 065
     Dates: start: 20140609, end: 20140630
  16. DOXORUBICIN HYDROCHLORIDE [Suspect]
     Active Substance: DOXORUBICIN HYDROCHLORIDE
     Dosage: UNK
     Route: 065
     Dates: start: 20170428, end: 20170511
  17. DOXORUBICIN HYDROCHLORIDE [Suspect]
     Active Substance: DOXORUBICIN HYDROCHLORIDE
     Dosage: UNK
     Route: 065
     Dates: start: 20170524, end: 20170526
  18. DOXORUBICIN HYDROCHLORIDE [Suspect]
     Active Substance: DOXORUBICIN HYDROCHLORIDE
     Dosage: UNK
     Route: 065
     Dates: start: 20170620, end: 20170703
  19. ONCOVIN [Suspect]
     Active Substance: VINCRISTINE SULFATE
     Indication: Philadelphia positive acute lymphocytic leukaemia
     Dosage: UNK
     Route: 065
     Dates: start: 20140609, end: 20140630
  20. ONCOVIN [Suspect]
     Active Substance: VINCRISTINE SULFATE
     Dosage: UNK
     Route: 065
     Dates: start: 20170428, end: 20170511
  21. ONCOVIN [Suspect]
     Active Substance: VINCRISTINE SULFATE
     Dosage: UNK
     Route: 065
     Dates: start: 20170524, end: 20170526
  22. ONCOVIN [Suspect]
     Active Substance: VINCRISTINE SULFATE
     Dosage: UNK
     Route: 065
     Dates: start: 20170620, end: 20170703
  23. FLUCONAZOLE [Concomitant]
     Active Substance: FLUCONAZOLE
     Indication: Prophylaxis
     Dosage: UNK
     Route: 065
     Dates: start: 20170428, end: 20170730
  24. GRANULOCYTE COLONY-STIMULATING FACTOR NOS [Concomitant]
     Active Substance: GRANULOCYTE COLONY-STIMULATING FACTOR NOS
     Indication: White blood cell count decreased
     Dosage: UNK
     Route: 065
  25. SPRYCEL [Concomitant]
     Active Substance: DASATINIB
     Indication: Philadelphia positive acute lymphocytic leukaemia
     Dosage: 140 MG, QD
     Route: 065
     Dates: start: 20140506, end: 20140522
  26. SPRYCEL [Concomitant]
     Active Substance: DASATINIB
     Dosage: 20 MG, QD
     Route: 065
     Dates: start: 20150331, end: 20150915
  27. SPRYCEL [Concomitant]
     Active Substance: DASATINIB
     Dosage: 140 MG, QD
     Route: 065
     Dates: start: 20170418, end: 20170427
  28. ACETAMINOPHEN [Concomitant]
     Active Substance: ACETAMINOPHEN
     Indication: Viral parotitis
     Route: 065
  29. HYDROCORTONE [Concomitant]
     Active Substance: HYDROCORTISONE
     Indication: Drug eruption
     Dosage: UNK
     Route: 041
  30. HYDROCORTONE [Concomitant]
     Active Substance: HYDROCORTISONE
     Indication: Pyrexia
  31. IMATINIB MESYLATE [Concomitant]
     Active Substance: IMATINIB MESYLATE
     Indication: Philadelphia positive acute lymphocytic leukaemia
     Dosage: 600 MG, QD
     Route: 065
     Dates: start: 20140606, end: 20140723
  32. METHOTREXATE [Concomitant]
     Active Substance: METHOTREXATE
     Indication: Chemotherapy
     Dosage: UNK
     Route: 065

REACTIONS (14)
  - Viral parotitis [Recovering/Resolving]
  - Drug eruption [Recovering/Resolving]
  - Glaucoma [Not Recovered/Not Resolved]
  - Platelet count decreased [Recovered/Resolved]
  - White blood cell count decreased [Recovered/Resolved]
  - Anaemia [Recovering/Resolving]
  - Pyrexia [Recovering/Resolving]
  - Graft versus host disease [Unknown]
  - Cystitis viral [Recovering/Resolving]
  - Laryngeal cancer [Unknown]
  - Oesophageal carcinoma [Unknown]
  - Cytomegalovirus viraemia [Recovering/Resolving]
  - Parotitis [Recovered/Resolved]
  - Product use in unapproved indication [Unknown]

NARRATIVE: CASE EVENT DATE: 20170410
